FAERS Safety Report 23568473 (Version 1)
Quarter: 2024Q1

REPORT INFORMATION
  Report Type: Spontaneous
  Country: US (occurrence: US)
  Receive Date: 20240227
  Receipt Date: 20240227
  Transmission Date: 20240410
  Serious: No
  Sender: FDA-Public Use
  Company Number: US-PADAGIS-2024PAD00227

PATIENT

DRUGS (1)
  1. ESTRADIOL VAGINAL [Suspect]
     Active Substance: ESTRADIOL
     Indication: Product used for unknown indication
     Dosage: TWICE A WEEK
     Route: 065

REACTIONS (3)
  - Therapy partial responder [Unknown]
  - Inappropriate schedule of product administration [Unknown]
  - Product storage error [Unknown]
